FAERS Safety Report 6181218-7 (Version None)
Quarter: 2009Q2

REPORT INFORMATION
  Report Type: 
  Country: None (occurrence: None)
  Receive Date: 20090501
  Receipt Date: 20090416
  Transmission Date: 20091009
  Serious: Yes (Other)
  Sender: FDA-Public Use
  Company Number: 8044708

PATIENT
  Age: 3 Year
  Sex: Male

DRUGS (1)
  1. XOZAL [Suspect]
     Dosage: 2.5 ML ONCE PO
     Route: 048
     Dates: start: 20080701, end: 20080701

REACTIONS (2)
  - DRUG DISPENSING ERROR [None]
  - INCORRECT DOSE ADMINISTERED [None]
